FAERS Safety Report 14913675 (Version 1)
Quarter: 2018Q2

REPORT INFORMATION
  Report Type: Spontaneous
  Country: FR (occurrence: FR)
  Receive Date: 20180518
  Receipt Date: 20180518
  Transmission Date: 20180711
  Serious: Yes (Hospitalization, Other)
  Sender: FDA-Public Use
  Company Number: FR-PFIZER INC-2018200772

PATIENT
  Age: 33 Year
  Sex: Male
  Weight: 78 kg

DRUGS (3)
  1. PANTOPRAZOLE [Suspect]
     Active Substance: PANTOPRAZOLE
     Indication: OESOPHAGITIS
     Dosage: UNK
     Route: 048
  2. RANITIDINE HYDROCHLORIDE. [Suspect]
     Active Substance: RANITIDINE HYDROCHLORIDE
     Indication: OESOPHAGITIS
     Dosage: UNK
     Route: 048
  3. METEOSPASMYL [ALVERINE CITRATE;DL-METHIONINE [Suspect]
     Active Substance: ALVERINE CITRATE\RACEMETHIONINE
     Indication: OESOPHAGITIS
     Dosage: UNK
     Route: 048

REACTIONS (2)
  - Urinary retention [Recovering/Resolving]
  - Acute kidney injury [Recovering/Resolving]

NARRATIVE: CASE EVENT DATE: 20180410
